FAERS Safety Report 5845580-4 (Version None)
Quarter: 2008Q3

REPORT INFORMATION
  Report Type: 
  Country: None (occurrence: None)
  Receive Date: 20080814
  Receipt Date: 20080807
  Transmission Date: 20090109
  Serious: Yes (Other)
  Sender: FDA-Public Use
  Company Number: PT-ALLERGAN-0809875US

PATIENT
  Sex: Female

DRUGS (2)
  1. TROSPIUM CHLORIDE [Suspect]
     Indication: URINARY INCONTINENCE
     Dosage: 20 MG, BID
     Route: 048
     Dates: start: 20070308, end: 20071109
  2. TANDIX LP [Suspect]
     Indication: HYPERTENSION
     Dosage: 1.5 MG, QD (PROLONGED DELIVERY, A TABLET/DAY)
     Route: 048
     Dates: start: 20050101

REACTIONS (2)
  - HEPATIC ENZYME INCREASED [None]
  - HEPATOMEGALY [None]
